FAERS Safety Report 4356628-0 (Version None)
Quarter: 2004Q2

REPORT INFORMATION
  Report Type: 
  Country: None (occurrence: None)
  Receive Date: 20040506
  Receipt Date: 20040426
  Transmission Date: 20050107
  Serious: Yes (Life-Threatening)
  Sender: FDA-Public Use
  Company Number: 2004028953

PATIENT
  Age: 35 Year
  Sex: Male
  Weight: 70 kg

DRUGS (1)
  1. CYCLOKAPRON (TRANEXAMIC ACID) [Suspect]
     Indication: HAEMORRHAGE
     Dosage: 500 MG ONCE, INTRAVENOUS
     Route: 042
     Dates: start: 20040419, end: 20040419

REACTIONS (3)
  - BLOOD PRESSURE DECREASED [None]
  - BODY TEMPERATURE DECREASED [None]
  - BRADYCARDIA [None]
